FAERS Safety Report 11373726 (Version 1)
Quarter: 2015Q3

REPORT INFORMATION
  Report Type: Spontaneous
  Country: US (occurrence: US)
  Receive Date: 20150811
  Receipt Date: 20150811
  Transmission Date: 20151125
  Serious: Yes (Other)
  Sender: FDA-Public Use
  Company Number: US-ELI_LILLY_AND_COMPANY-US201109005496

PATIENT
  Age: 21 Year
  Sex: Male

DRUGS (2)
  1. CIALIS [Suspect]
     Active Substance: TADALAFIL
     Indication: ERECTILE DYSFUNCTION
  2. LEVITRA [Concomitant]
     Active Substance: VARDENAFIL HYDROCHLORIDE TRIHYDRATE
     Indication: ERECTILE DYSFUNCTION

REACTIONS (11)
  - Hypertension [Unknown]
  - Drug ineffective [Unknown]
  - Myocardial infarction [Unknown]
  - Cerebrovascular accident [Unknown]
  - Blood cholesterol increased [Unknown]
  - Off label use [Unknown]
  - Hypotension [Unknown]
  - Depressed mood [Unknown]
  - Diabetes mellitus [Unknown]
  - Benign prostatic hyperplasia [Unknown]
  - Blood testosterone decreased [Unknown]
